FAERS Safety Report 5941623-8 (Version None)
Quarter: 2008Q4

REPORT INFORMATION
  Report Type: 
  Country: None (occurrence: None)
  Receive Date: 20081104
  Receipt Date: 20081104
  Transmission Date: 20090506
  Serious: Yes (Other)
  Sender: FDA-Public Use
  Company Number: None

PATIENT
  Age: 58 Year
  Sex: Male
  Weight: 88 kg

DRUGS (2)
  1. HEPARIN [Suspect]
     Indication: ANTICOAGULANT THERAPY
     Dosage: 25,000 UNITS ONCE DAILY IV
     Route: 042
     Dates: start: 20080507, end: 20080511
  2. WARFARIN SODIUM [Suspect]
     Indication: ANTICOAGULANT THERAPY
     Dosage: 5 MG DAILY AR BEDTIME PO
     Route: 048
     Dates: start: 20080509, end: 20080510

REACTIONS (3)
  - ABDOMINAL PAIN [None]
  - ECCHYMOSIS [None]
  - HAEMATOMA [None]
